FAERS Safety Report 11611637 (Version 1)
Quarter: 2015Q4

REPORT INFORMATION
  Report Type: Spontaneous
  Country: PL (occurrence: PL)
  Receive Date: 20151008
  Receipt Date: 20151008
  Transmission Date: 20160304
  Serious: Yes (Other)
  Sender: FDA-Public Use
  Company Number: PL-BAYER-2015-432493

PATIENT
  Age: 64 Year
  Sex: Male
  Weight: 115 kg

DRUGS (3)
  1. GADOVIST [Suspect]
     Active Substance: GADOBUTROL
     Indication: NUCLEAR MAGNETIC RESONANCE IMAGING
  2. CORHYDRON [Concomitant]
     Dosage: 100 MG, UNK
     Route: 042
  3. GADOVIST [Suspect]
     Active Substance: GADOBUTROL
     Indication: NON-HODGKIN^S LYMPHOMA
     Dosage: 7.5 ML, UNK
     Route: 042
     Dates: start: 20150610

REACTIONS (4)
  - Erythema [Recovered/Resolved]
  - Rash [Recovered/Resolved]
  - Oedema peripheral [Recovered/Resolved]
  - Hypoaesthesia [Recovered/Resolved]

NARRATIVE: CASE EVENT DATE: 20150610
